FAERS Safety Report 8965935 (Version 1)
Quarter: 2012Q4

REPORT INFORMATION
  Report Type: 
  Country: US (occurrence: US)
  Receive Date: 20121214
  Receipt Date: 20121214
  Transmission Date: 20130627
  Serious: No
  Sender: FDA-Public Use
  Company Number: US-PFIZER INC-2012317540

PATIENT
  Age: 61 Year
  Sex: Female
  Weight: 158.73 kg

DRUGS (5)
  1. NEURONTIN [Suspect]
     Indication: BACK DISORDER
     Dosage: 300 mg, 2x/day
     Route: 048
     Dates: start: 201207, end: 2012
  2. NEURONTIN [Suspect]
     Indication: BACK PAIN
  3. WELLBUTRIN [Concomitant]
     Indication: DEPRESSION
     Dosage: 300 mg, UNK
  4. GLUCOTROL [Concomitant]
     Dosage: 5 mg, 1x/day
  5. NORVASC [Concomitant]
     Dosage: 10 mg, 1x/day

REACTIONS (2)
  - Back pain [Not Recovered/Not Resolved]
  - Weight abnormal [Unknown]
